FAERS Safety Report 25632682 (Version 1)
Quarter: 2025Q3

REPORT INFORMATION
  Report Type: Spontaneous
  Country: US (occurrence: US)
  Receive Date: 20250801
  Receipt Date: 20250801
  Transmission Date: 20251020
  Serious: No
  Sender: GRIFOLS
  Company Number: US-IGSA-BIG0031907

PATIENT
  Age: 52 Year
  Sex: Female

DRUGS (4)
  1. GAMUNEX-C [Suspect]
     Active Substance: HUMAN IMMUNOGLOBULIN G
     Indication: Secondary immunodeficiency
     Route: 042
     Dates: start: 20241122, end: 20241122
  2. GAMUNEX-C [Suspect]
     Active Substance: HUMAN IMMUNOGLOBULIN G
     Dosage: 32 GRAM, Q.4WK.
     Route: 042
     Dates: start: 20241122
  3. GAMUNEX-C [Suspect]
     Active Substance: HUMAN IMMUNOGLOBULIN G
  4. GAMUNEX-C [Suspect]
     Active Substance: HUMAN IMMUNOGLOBULIN G

REACTIONS (3)
  - Nausea [Recovering/Resolving]
  - Vomiting [Unknown]
  - Underdose [Unknown]

NARRATIVE: CASE EVENT DATE: 20241122
